FAERS Safety Report 4551786-7 (Version None)
Quarter: 2005Q1

REPORT INFORMATION
  Report Type: 
  Country: None (occurrence: None)
  Receive Date: 20050111
  Receipt Date: 20041230
  Transmission Date: 20050727
  Serious: Yes (Death, Hospitalization, Other)
  Sender: FDA-Public Use
  Company Number: 200510000BSV

PATIENT
  Age: 70 Year
  Sex: Female

DRUGS (26)
  1. CIPROFLOXACIN [Suspect]
     Indication: KLEBSIELLA INFECTION
     Dosage: 500 MG, BID, ORAL
     Route: 048
     Dates: start: 20041126, end: 20041207
  2. DIFLUCAN [Suspect]
     Indication: KLEBSIELLA INFECTION
     Dosage: 50 MG, QD,
     Dates: start: 20041125, end: 20041209
  3. DOXIMED [Concomitant]
  4. MAREVAN [Concomitant]
  5. DIGOXIN [Concomitant]
  6. ISMOX [Concomitant]
  7. SPARTOCINE [Concomitant]
  8. AMARYL [Concomitant]
  9. PRIMASPAN [Concomitant]
  10. FURESIS [Concomitant]
  11. SINGULAIR [Concomitant]
  12. ZOCOR [Concomitant]
  13. APURIN [Concomitant]
  14. EMCONCOR /BEL/ [Concomitant]
  15. COZAAR [Concomitant]
  16. PREDNISOLONE [Concomitant]
  17. ERDOPECT [Concomitant]
  18. NORVASC [Concomitant]
  19. FLIXOTIDE [Concomitant]
  20. RETAFYLLIN [Concomitant]
  21. SOMAC [Concomitant]
  22. XYZAL [Concomitant]
  23. PROTAPHAN [Concomitant]
  24. SEREVENT [Concomitant]
  25. ATROVENT [Concomitant]
  26. IMOVANE [Concomitant]

REACTIONS (3)
  - AGRANULOCYTOSIS [None]
  - MULTI-ORGAN FAILURE [None]
  - SEPSIS [None]
